FAERS Safety Report 7510762-2 (Version None)
Quarter: 2011Q2

REPORT INFORMATION
  Report Type: 
  Country: None (occurrence: None)
  Receive Date: 20110530
  Receipt Date: 20110516
  Transmission Date: 20111010
  Serious: Yes (Other)
  Sender: FDA-Public Use
  Company Number: PHHY2011DE45597

PATIENT
  Sex: Female

DRUGS (1)
  1. GILENYA [Suspect]
     Indication: MULTIPLE SCLEROSIS
     Dosage: 05 MG, QD
     Route: 048
     Dates: start: 20110501, end: 20110501

REACTIONS (4)
  - PHARYNGEAL OEDEMA [None]
  - SWELLING FACE [None]
  - DYSPNOEA [None]
  - RASH [None]
